FAERS Safety Report 8925843 (Version 5)
Quarter: 2013Q2

REPORT INFORMATION
  Report Type: Report from Study
  Country: CA (occurrence: CA)
  Receive Date: 20121126
  Receipt Date: 20130617
  Transmission Date: 20140414
  Serious: Yes (Other)
  Sender: FDA-Public Use
  Company Number: CA-ROCHE-1149351

PATIENT
  Age: 71 Year
  Sex: Female
  Weight: 75.8 kg

DRUGS (21)
  1. ACTEMRA [Suspect]
     Indication: RHEUMATOID ARTHRITIS
     Route: 042
     Dates: start: 20111207
  2. ACTEMRA [Suspect]
     Route: 065
     Dates: start: 20130115, end: 20130213
  3. PREDNISONE [Suspect]
     Indication: PRODUCT USED FOR UNKNOWN INDICATION
     Route: 065
     Dates: start: 201208, end: 20120921
  4. MELOXICAM [Concomitant]
     Indication: MUSCLE RELAXANT THERAPY
     Route: 048
     Dates: start: 20090401
  5. SYMBICORT [Concomitant]
     Route: 065
     Dates: start: 20120120
  6. PARIET [Concomitant]
     Route: 065
     Dates: start: 20120419, end: 20121001
  7. APO-SALVENT [Concomitant]
  8. AVAMYS [Concomitant]
     Route: 065
     Dates: start: 20120827
  9. RHINOCORT [Concomitant]
  10. FLOVENT [Concomitant]
  11. ENBREL [Concomitant]
     Route: 065
     Dates: start: 20121015
  12. FLAXSEED OIL [Concomitant]
     Route: 065
     Dates: start: 20090401
  13. VENTOLIN [Concomitant]
     Route: 065
     Dates: start: 20090620
  14. BETADERM (CANADA) [Concomitant]
     Route: 065
     Dates: start: 20091015
  15. ZITHROMAX [Concomitant]
     Route: 065
     Dates: start: 20120526, end: 20120603
  16. GENTAMICIN OPHTHALMIC [Concomitant]
  17. DOXYCYCLIN [Concomitant]
  18. CLOXACILLIN [Concomitant]
  19. KEFLEX [Concomitant]
  20. PERCOCET [Concomitant]
  21. BENADRYL [Concomitant]

REACTIONS (7)
  - Type 2 diabetes mellitus [Not Recovered/Not Resolved]
  - Nasopharyngitis [Recovering/Resolving]
  - Weight increased [Not Recovered/Not Resolved]
  - Blood cholesterol increased [Not Recovered/Not Resolved]
  - Alopecia [Not Recovered/Not Resolved]
  - Stomatitis [Not Recovered/Not Resolved]
  - Blood pressure diastolic increased [Recovering/Resolving]
